FAERS Safety Report 19026909 (Version 1)
Quarter: 2021Q1

REPORT INFORMATION
  Report Type: Report from Study
  Country: US (occurrence: US)
  Receive Date: 20210318
  Receipt Date: 20210318
  Transmission Date: 20210420
  Serious: Yes (Hospitalization)
  Sender: FDA-Public Use
  Company Number: US-GILEAD-2021-0520606

PATIENT
  Sex: Female

DRUGS (2)
  1. TOBI [Concomitant]
     Active Substance: TOBRAMYCIN
  2. AZTREONAM LYSINE [Suspect]
     Active Substance: AZTREONAM LYSINE
     Indication: PSEUDOMONAS INFECTION
     Dosage: 75 MG, TID, QOM
     Route: 055

REACTIONS (1)
  - Infection [Not Recovered/Not Resolved]
